FAERS Safety Report 18537783 (Version 1)
Quarter: 2020Q4

REPORT INFORMATION
  Report Type: Spontaneous
  Country: US (occurrence: US)
  Receive Date: 20201123
  Receipt Date: 20201123
  Transmission Date: 20210114
  Serious: No
  Sender: FDA-Public Use
  Company Number: US-SUNOVION-2020SUN003407

PATIENT
  Sex: Male

DRUGS (1)
  1. LATUDA [Suspect]
     Active Substance: LURASIDONE HYDROCHLORIDE
     Indication: TOURETTE^S DISORDER
     Dosage: 40 MG
     Route: 048

REACTIONS (5)
  - Drug ineffective for unapproved indication [Unknown]
  - Anxiety [Unknown]
  - Decreased appetite [Unknown]
  - Off label use [Unknown]
  - Depression [Unknown]
